FAERS Safety Report 17202463 (Version 1)
Quarter: 2019Q4

REPORT INFORMATION
  Report Type: Spontaneous
  Country: US (occurrence: US)
  Receive Date: 20191226
  Receipt Date: 20191226
  Transmission Date: 20200122
  Serious: Yes (Other)
  Sender: FDA-Public Use
  Company Number: US-INTERNATIONAL MEDICATION SYSTEMS, LIMITED-2077231

PATIENT

DRUGS (1)
  1. LIDOCAINE HYDROCHLORIDE. [Suspect]
     Active Substance: LIDOCAINE HYDROCHLORIDE
     Indication: SURGERY

REACTIONS (2)
  - Foreign body in respiratory tract [Recovered/Resolved]
  - Removal of foreign body [Recovered/Resolved]

NARRATIVE: CASE EVENT DATE: 20191001
